FAERS Safety Report 9218127 (Version 3)
Quarter: 2013Q2

REPORT INFORMATION
  Report Type: Spontaneous
  Country: US (occurrence: US)
  Receive Date: 20130408
  Receipt Date: 20130513
  Transmission Date: 20140414
  Serious: Yes (Hospitalization)
  Sender: FDA-Public Use
  Company Number: US-BAXTER-2013BAX012278

PATIENT
  Age: 41 Year
  Sex: Female
  Weight: 97.5 kg

DRUGS (5)
  1. GAMMAGARD LIQUID [Suspect]
     Indication: HYPOGAMMAGLOBULINAEMIA
     Route: 042
     Dates: start: 20130126, end: 20130126
  2. CYMBALTA [Concomitant]
     Indication: DEPRESSION
     Route: 048
  3. ZOFRAN [Concomitant]
     Indication: NAUSEA
     Route: 048
  4. MESALAMINE [Concomitant]
     Indication: CROHN^S DISEASE
     Route: 048
  5. AMITRIPTYLINE [Concomitant]
     Indication: DEPRESSION
     Route: 048

REACTIONS (10)
  - Chest pain [Recovered/Resolved]
  - Headache [Recovered/Resolved]
  - Spinal pain [Recovered/Resolved]
  - Cough [Recovered/Resolved]
  - Abdominal pain [Recovered/Resolved]
  - Palpitations [Recovered/Resolved]
  - Serum sickness [Unknown]
  - Infusion related reaction [Unknown]
  - Chills [Recovered/Resolved]
  - Pyrexia [Recovered/Resolved]
